FAERS Safety Report 5695687-X (Version None)
Quarter: 2008Q2

REPORT INFORMATION
  Report Type: 
  Country: None (occurrence: None)
  Receive Date: 20080403
  Receipt Date: 20080327
  Transmission Date: 20081010
  Serious: Yes (Death, Hospitalization, Other)
  Sender: FDA-Public Use
  Company Number: 163-20785-08031811

PATIENT
  Age: 60 Year
  Sex: Female

DRUGS (2)
  1. THALOMID [Suspect]
     Indication: LUNG NEOPLASM MALIGNANT
     Dosage: 100 MG, 2 IN 1 D, ORAL
     Route: 048
     Dates: start: 20080208
  2. BLOOD THINNERS (ANTICOAGULANT SODIUM CITRATE) [Concomitant]

REACTIONS (2)
  - CEREBRAL HAEMORRHAGE [None]
  - PNEUMONIA [None]
